FAERS Safety Report 7846415-0 (Version None)
Quarter: 2011Q4

REPORT INFORMATION
  Report Type: 
  Country: None (occurrence: None)
  Receive Date: 20111025
  Receipt Date: 20111025
  Transmission Date: 20120403
  Serious: Yes (Life-Threatening, Hospitalization, Disabling, Other)
  Sender: FDA-Public Use
  Company Number: None

PATIENT
  Age: 26 Year
  Sex: Female
  Weight: 54.431 kg

DRUGS (1)
  1. MIRENA [Suspect]
     Dates: start: 20090215, end: 20110326

REACTIONS (21)
  - FATIGUE [None]
  - VISION BLURRED [None]
  - HEADACHE [None]
  - IRRITABILITY [None]
  - DISTURBANCE IN ATTENTION [None]
  - JOINT STIFFNESS [None]
  - ANXIETY [None]
  - MUSCLE ATROPHY [None]
  - BALANCE DISORDER [None]
  - SKIN DISORDER [None]
  - COORDINATION ABNORMAL [None]
  - PALPITATIONS [None]
  - DEPRESSION [None]
  - ACNE [None]
  - DYSPNOEA [None]
  - ASTHENIA [None]
  - TREMOR [None]
  - SKIN DISCOLOURATION [None]
  - MUSCULOSKELETAL STIFFNESS [None]
  - DIZZINESS [None]
  - POLLAKIURIA [None]
